FAERS Safety Report 9944138 (Version 1)
Quarter: 2014Q1

REPORT INFORMATION
  Report Type: Report from Study
  Country: US (occurrence: US)
  Receive Date: 20140303
  Receipt Date: 20140303
  Transmission Date: 20141002
  Serious: No
  Sender: FDA-Public Use
  Company Number: US-ABBVIE-13P-163-1050040-00

PATIENT
  Age: 59 Year
  Sex: Female

DRUGS (8)
  1. HUMIRA [Suspect]
     Indication: PSORIATIC ARTHROPATHY
     Dates: start: 201212
  2. HUMIRA [Suspect]
     Indication: PSORIASIS
  3. LEVOXYL [Concomitant]
     Indication: HYPOTHYROIDISM
  4. ATENOLOL [Concomitant]
     Indication: HYPERTENSION
  5. PAXIL [Concomitant]
     Indication: DEPRESSION
  6. PAXIL [Concomitant]
     Indication: PANIC ATTACK
  7. TRAMADOL [Concomitant]
     Indication: PAIN
     Dosage: 1 TAB UP TO THREE TIMES DAILY, AS NEEDED
  8. ATIVAN [Concomitant]
     Indication: PANIC ATTACK
     Dosage: 1 TAB, AS NEEDED

REACTIONS (3)
  - Sinus headache [Not Recovered/Not Resolved]
  - Influenza like illness [Not Recovered/Not Resolved]
  - Headache [Not Recovered/Not Resolved]
